FAERS Safety Report 10352123 (Version 2)
Quarter: 2014Q4

REPORT INFORMATION
  Report Type: Spontaneous
  Country: US (occurrence: US)
  Receive Date: 20140730
  Receipt Date: 20141119
  Transmission Date: 20150528
  Serious: No
  Sender: FDA-Public Use
  Company Number: US-GILEAD-2014-0110462

PATIENT
  Age: 46 Year
  Sex: Female

DRUGS (1)
  1. LETAIRIS [Suspect]
     Active Substance: AMBRISENTAN
     Indication: CONGENITAL PULMONARY HYPERTENSION
     Dosage: 10 MG, QD
     Route: 065
     Dates: start: 20140626

REACTIONS (1)
  - Syncope [Unknown]

NARRATIVE: CASE EVENT DATE: 201405
